FAERS Safety Report 23762210 (Version 1)
Quarter: 2024Q2

REPORT INFORMATION
  Report Type: Spontaneous
  Country: US (occurrence: US)
  Receive Date: 20240419
  Receipt Date: 20240419
  Transmission Date: 20240716
  Serious: No
  Sender: FDA-Public Use
  Company Number: US-HIKMA PHARMACEUTICALS-US-H14001-23-63335

PATIENT
  Sex: Female

DRUGS (1)
  1. AMOXICILLIN [Suspect]
     Active Substance: AMOXICILLIN
     Indication: Antibiotic prophylaxis
     Dosage: 875 MILLIGRAM, BID
     Route: 048
     Dates: start: 20230626

REACTIONS (4)
  - Pruritus [Unknown]
  - Lip swelling [Unknown]
  - Urticaria [Unknown]
  - Drug ineffective [Unknown]
